FAERS Safety Report 20939689 (Version 2)
Quarter: 2022Q2

REPORT INFORMATION
  Report Type: Spontaneous
  Country: US (occurrence: US)
  Receive Date: 20220609
  Receipt Date: 20220627
  Transmission Date: 20220721
  Serious: No
  Sender: FDA-Public Use
  Company Number: US-JNJFOC-20220600805

PATIENT
  Sex: Female

DRUGS (2)
  1. STELARA [Suspect]
     Active Substance: USTEKINUMAB
     Indication: Product used for unknown indication
     Dosage: STRENGTH: 90 MG IN 1 ML
     Route: 058
  2. STELARA [Suspect]
     Active Substance: USTEKINUMAB

REACTIONS (2)
  - Drug ineffective [Unknown]
  - Condition aggravated [Unknown]

NARRATIVE: CASE EVENT DATE: 20220101
